FAERS Safety Report 8007252-X (Version None)
Quarter: 2011Q4

REPORT INFORMATION
  Report Type: 
  Country: None (occurrence: None)
  Receive Date: 20111123
  Receipt Date: 20110811
  Transmission Date: 20120403
  Serious: No
  Sender: FDA-Public Use
  Company Number: 330218

PATIENT
  Age: 54 Year
  Sex: Male

DRUGS (2)
  1. JANUMET [Concomitant]
  2. VICTOZA [Suspect]
     Indication: TYPE 2 DIABETES MELLITUS
     Dosage: , SUBCUTANEOUS
     Route: 058

REACTIONS (2)
  - SOMNOLENCE [None]
  - PRURITUS [None]
